FAERS Safety Report 22096642 (Version 2)
Quarter: 2023Q1

REPORT INFORMATION
  Report Type: Spontaneous
  Country: US (occurrence: US)
  Receive Date: 20230315
  Receipt Date: 20230327
  Transmission Date: 20230418
  Serious: Yes (Other)
  Sender: FDA-Public Use
  Company Number: US-LUPIN PHARMACEUTICALS INC.-2023-02032

PATIENT
  Age: 80 Year
  Sex: Male

DRUGS (15)
  1. ATOVAQUONE [Suspect]
     Active Substance: ATOVAQUONE
     Indication: Babesiosis
     Dosage: 750 MG, BID
     Route: 065
  2. ATOVAQUONE [Suspect]
     Active Substance: ATOVAQUONE
     Dosage: 1250 MG
     Route: 065
  3. QUININE [Suspect]
     Active Substance: QUININE
     Indication: Babesiosis
     Dosage: 648 MG, TID
     Route: 065
  4. AZITHROMYCIN [Suspect]
     Active Substance: AZITHROMYCIN
     Indication: Babesiosis
     Dosage: 500 MG, QD
     Route: 065
  5. AZITHROMYCIN [Suspect]
     Active Substance: AZITHROMYCIN
     Dosage: 1000 MG, QD
     Route: 065
  6. ATOVAQUONE\PROGUANIL [Suspect]
     Active Substance: ATOVAQUONE\PROGUANIL
     Indication: Babesiosis
     Dosage: UNK UNK, QD, ATOVAQUONE/PROGUANIL 1000/400 MG DAILY
     Route: 065
  7. ATOVAQUONE\PROGUANIL [Suspect]
     Active Substance: ATOVAQUONE\PROGUANIL
     Dosage: UNK UNK, QD, ATOVAQUONE/PROGUANIL 500/200 MG DAILY
     Route: 065
  8. CLINDAMYCIN [Suspect]
     Active Substance: CLINDAMYCIN
     Indication: Babesiosis
     Dosage: 600 MG, TID, THRICE DAILY
     Route: 065
  9. CLINDAMYCIN [Suspect]
     Active Substance: CLINDAMYCIN
     Dosage: 300 MG, TID, THRICE DAILY
     Route: 065
  10. Immunoglobulin [Concomitant]
     Indication: Cold type haemolytic anaemia
     Dosage: UNK
     Route: 042
  11. RITUXIMAB [Concomitant]
     Active Substance: RITUXIMAB
     Indication: Monoclonal B-cell lymphocytosis
     Dosage: UNK
     Route: 065
  12. BENDAMUSTINE [Concomitant]
     Active Substance: BENDAMUSTINE
     Indication: Monoclonal B-cell lymphocytosis
     Dosage: UNK
     Route: 065
  13. TAFENOQUINE [Concomitant]
     Active Substance: TAFENOQUINE
     Indication: Babesiosis
     Dosage: 300 MG, RECEIVED ON DAY 256 OF THE BABESIOSIS DIAGNOSIS
     Route: 065
  14. TAFENOQUINE [Concomitant]
     Active Substance: TAFENOQUINE
     Dosage: 150 MG, RECEIVED ON DAY 257 AND 258 OF THE BABESIOSIS DIAGNOSIS.
     Route: 065
  15. TAFENOQUINE [Concomitant]
     Active Substance: TAFENOQUINE
     Dosage: 300 MG, WEEKLY
     Route: 065

REACTIONS (4)
  - Drug resistance [Unknown]
  - Abdominal discomfort [Recovered/Resolved]
  - Nausea [Recovered/Resolved]
  - Off label use [Unknown]
